FAERS Safety Report 14283491 (Version 2)
Quarter: 2018Q1

REPORT INFORMATION
  Report Type: Report from Study
  Country: US (occurrence: US)
  Receive Date: 20171213
  Receipt Date: 20180109
  Transmission Date: 20180509
  Serious: Yes (Other)
  Sender: FDA-Public Use
  Company Number: US-GILEAD-2017-0302888

PATIENT
  Age: 68 Year
  Sex: Female

DRUGS (4)
  1. SULFAMETHIZOLE W/TRIMETHOPRIM [Concomitant]
     Active Substance: SULFAMETHOXAZOLE\TRIMETHOPRIM
     Indication: ANTIBIOTIC PROPHYLAXIS
     Dosage: 800/150 MG Q MON, WED, FRI
     Dates: start: 20171101
  2. IDELALISIB [Suspect]
     Active Substance: IDELALISIB
     Dosage: 150 MG, BID
     Route: 048
     Dates: start: 20171101
  3. IDELALISIB [Suspect]
     Active Substance: IDELALISIB
     Indication: EXTRANODAL MARGINAL ZONE B-CELL LYMPHOMA (MALT TYPE)
     Dosage: 150 MG, UNK
     Route: 048
     Dates: end: 201705
  4. SWISS KRISS [Concomitant]
     Indication: CONSTIPATION
     Dosage: UNKNOWN

REACTIONS (6)
  - Constipation [Not Recovered/Not Resolved]
  - Product use issue [Recovered/Resolved]
  - White blood cell count increased [Not Recovered/Not Resolved]
  - White blood cell count decreased [Not Recovered/Not Resolved]
  - Fungal skin infection [Recovering/Resolving]
  - Fatigue [Not Recovered/Not Resolved]

NARRATIVE: CASE EVENT DATE: 201705
